FAERS Safety Report 7653183-4 (Version None)
Quarter: 2011Q3

REPORT INFORMATION
  Report Type: 
  Country: None (occurrence: None)
  Receive Date: 20110802
  Receipt Date: 20110802
  Transmission Date: 20111222
  Serious: No
  Sender: FDA-Public Use
  Company Number: None

PATIENT
  Age: 92 Year
  Sex: Female
  Weight: 76.2043 kg

DRUGS (1)
  1. ADCIRCA [Suspect]
     Indication: PULMONARY HYPERTENSION
     Dosage: TWO EVERY DAY ONCE DAILY  6,14 TO 6,19 (6,27 TO 6,30)

REACTIONS (4)
  - BACK PAIN [None]
  - MALAISE [None]
  - GAIT DISTURBANCE [None]
  - PAIN IN EXTREMITY [None]
